FAERS Safety Report 25182242 (Version 2)
Quarter: 2025Q2

REPORT INFORMATION
  Report Type: Spontaneous
  Country: US (occurrence: US)
  Receive Date: 20250410
  Receipt Date: 20250626
  Transmission Date: 20250717
  Serious: No
  Sender: Unknown Manufacturer
  Company Number: US-Kiniksa Pharmaceuticals Ltd.-2024KPU000580

PATIENT
  Sex: Female

DRUGS (4)
  1. ARCALYST [Suspect]
     Active Substance: RILONACEPT
     Indication: Pericarditis
     Dates: start: 20231014
  2. ARCALYST [Suspect]
     Active Substance: RILONACEPT
     Dosage: 220 MILLIGRAM, QOW
  3. ARCALYST [Suspect]
     Active Substance: RILONACEPT
     Dates: end: 202406
  4. ARCALYST [Suspect]
     Active Substance: RILONACEPT
     Dates: start: 202408

REACTIONS (7)
  - Inappropriate schedule of product administration [Recovered/Resolved]
  - Chest discomfort [Recovered/Resolved]
  - Condition aggravated [Unknown]
  - Therapy cessation [Unknown]
  - Pain [Unknown]
  - Inappropriate schedule of product administration [Unknown]
  - Injection site erythema [Recovered/Resolved]

NARRATIVE: CASE EVENT DATE: 20240101
